FAERS Safety Report 13766388 (Version 1)
Quarter: 2017Q3

REPORT INFORMATION
  Report Type: Spontaneous
  Country: PL (occurrence: PL)
  Receive Date: 20170719
  Receipt Date: 20170719
  Transmission Date: 20171127
  Serious: Yes (Other)
  Sender: FDA-Public Use
  Company Number: PL-009507513-1707POL003525

PATIENT
  Age: 65 Year
  Sex: Female

DRUGS (5)
  1. JANUVIA [Suspect]
     Active Substance: SITAGLIPTIN PHOSPHATE
     Indication: DIABETES MELLITUS
     Dosage: 100 MG, DOSAGE - AD HOC
     Route: 048
     Dates: start: 2016
  2. JANUVIA [Suspect]
     Active Substance: SITAGLIPTIN PHOSPHATE
     Dosage: 100 MG, 1 TABLET EVERY TWO DAYS
     Route: 048
     Dates: start: 201705
  3. AUGMENTIN [Concomitant]
     Active Substance: AMOXICILLIN\CLAVULANATE POTASSIUM
     Indication: ANTIBIOTIC PROPHYLAXIS
     Dosage: UNK
  4. URO-VAXOM [Concomitant]
  5. DIAPREL [Concomitant]
     Active Substance: GLICLAZIDE
     Indication: DIABETES MELLITUS
     Dosage: 30 MG, UNK

REACTIONS (10)
  - Pyrexia [Unknown]
  - Product use issue [Unknown]
  - Arthralgia [Unknown]
  - Peripheral swelling [Unknown]
  - Red blood cell sedimentation rate increased [Unknown]
  - Rash macular [Unknown]
  - Cholecystectomy [Unknown]
  - Lip oedema [Unknown]
  - C-reactive protein increased [Unknown]
  - Product use issue [Unknown]

NARRATIVE: CASE EVENT DATE: 2016
